FAERS Safety Report 9529523 (Version 1)
Quarter: 2013Q2

REPORT INFORMATION
  Report Type: Spontaneous
  Country: US (occurrence: None)
  Receive Date: 20130401
  Receipt Date: 20130401
  Transmission Date: 20140414
  Serious: Yes (Hospitalization, Other)
  Sender: FDA-Public Use
  Company Number: PHEH2012US004263

PATIENT
  Age: 83 Year
  Sex: Male

DRUGS (7)
  1. EXELON PATCH [Suspect]
     Route: 062
  2. NAMENDA (MEMANTINE HYDROCHLORIDE) [Concomitant]
  3. CARBIDOPA W/LEVODOPA (CARBIDOPA, LEVODOPA) [Concomitant]
  4. FISH OIL (FISH OIL) [Concomitant]
  5. MULTIVIT (VITAMINS NOS) [Concomitant]
  6. FOLBEE [Concomitant]
  7. BABY ASPIRIN (ACETYLSALICYLIC ACID) [Concomitant]

REACTIONS (3)
  - Haematochezia [None]
  - Gastrointestinal haemorrhage [None]
  - Diverticulitis [None]
